FAERS Safety Report 16852877 (Version 1)
Quarter: 2019Q3

REPORT INFORMATION
  Report Type: Report from Study
  Country: US (occurrence: US)
  Receive Date: 20190925
  Receipt Date: 20190925
  Transmission Date: 20191005
  Serious: No
  Sender: FDA-Public Use
  Company Number: PHEH2019US038959

PATIENT
  Sex: Male

DRUGS (1)
  1. MAYZENT [Suspect]
     Active Substance: SIPONIMOD
     Indication: SECONDARY PROGRESSIVE MULTIPLE SCLEROSIS
     Dosage: 2 MG, QD
     Route: 048
     Dates: start: 20190805

REACTIONS (6)
  - Cognitive disorder [Unknown]
  - Amnesia [Unknown]
  - Neurological symptom [Unknown]
  - Disturbance in attention [Unknown]
  - Memory impairment [Unknown]
  - Fatigue [Unknown]
